FAERS Safety Report 13086699 (Version 1)
Quarter: 2017Q1

REPORT INFORMATION
  Report Type: Spontaneous
  Country: FR (occurrence: FR)
  Receive Date: 20170104
  Receipt Date: 20170104
  Transmission Date: 20170428
  Serious: Yes (Hospitalization, Other)
  Sender: FDA-Public Use
  Company Number: FR-GILEAD-2017-0251645

PATIENT
  Age: 0 Year
  Sex: Female
  Weight: 3.21 kg

DRUGS (3)
  1. EVIPLERA [Suspect]
     Active Substance: EMTRICITABINE\RILPIVIRINE\TENOFOVIR DISOPROXIL FUMARATE
     Indication: HIV INFECTION
     Dosage: UNK
     Route: 064
     Dates: start: 20160311, end: 20161220
  2. TAGAMET [Concomitant]
     Active Substance: CIMETIDINE
     Indication: HYPERCHLORHYDRIA
     Dosage: UNK
     Dates: start: 20161220, end: 20161220
  3. TARDYFERON B9                      /00023601/ [Concomitant]
     Active Substance: FERROUS SULFATE\FOLIC ACID
     Indication: ANAEMIA

REACTIONS (3)
  - Foetal exposure during pregnancy [Recovered/Resolved]
  - Foetal arrhythmia [Unknown]
  - Jaundice neonatal [Unknown]

NARRATIVE: CASE EVENT DATE: 20160311
